FAERS Safety Report 8581928-8 (Version None)
Quarter: 2012Q3

REPORT INFORMATION
  Report Type: 
  Country: None (occurrence: None)
  Receive Date: 20120809
  Receipt Date: 20120730
  Transmission Date: 20120928
  Serious: Yes (Death)
  Sender: FDA-Public Use
  Company Number: GB-FRI-1000037658

PATIENT
  Age: 12 Year
  Sex: Female

DRUGS (4)
  1. CITALOPRAM HYDROBROMIDE [Suspect]
  2. ACETAMINOPHEN [Concomitant]
  3. AMITRIPTYLINE HCL [Concomitant]
  4. DIHYDROCODEINE BITARTRATE INJ [Concomitant]

REACTIONS (1)
  - TOXICITY TO VARIOUS AGENTS [None]
